FAERS Safety Report 6658028-7 (Version None)
Quarter: 2010Q1

REPORT INFORMATION
  Report Type: 
  Country: None (occurrence: None)
  Receive Date: 20100325
  Receipt Date: 20100316
  Transmission Date: 20100710
  Serious: Yes (Hospitalization, Other)
  Sender: FDA-Public Use
  Company Number: 20097859

PATIENT
  Age: 75 Year
  Sex: Male

DRUGS (1)
  1. GABALON INTRATHECAL (BACLOFEN INJECTION) [Suspect]
     Indication: MUSCLE SPASTICITY
     Dosage: 600 - 46 MCG, DAILY, INTRATHECAL - S
     Route: 042

REACTIONS (2)
  - PYREXIA [None]
  - SKIN DISORDER [None]
